FAERS Safety Report 22714675 (Version 3)
Quarter: 2024Q1

REPORT INFORMATION
  Report Type: Other
  Country: US (occurrence: None)
  Receive Date: 20230718
  Receipt Date: 20240120
  Transmission Date: 20240409
  Serious: Yes (Other)
  Sender: FDA-Public Use
  Company Number: US-ROCHE-3388694

PATIENT
  Age: 45 Year
  Sex: Female
  Weight: 111.23 kg

DRUGS (4)
  1. OCREVUS [Suspect]
     Active Substance: OCRELIZUMAB
     Indication: Multiple sclerosis
     Dosage: TAKING OCRELIZUMAB IN //2020. LAST DOSE WAS 11/JUL/2023. OCREVUS INFUSION ON 11/JUL/2023
     Route: 042
     Dates: start: 2019
  2. RIZATRIPTAN BENZOATE [Concomitant]
     Active Substance: RIZATRIPTAN BENZOATE
     Indication: Migraine
     Route: 048
  3. AMBIEN [Concomitant]
     Active Substance: ZOLPIDEM TARTRATE
     Dosage: 10MG AS NEEDED FOR SLEEP
     Route: 048
  4. BENADRYL [Concomitant]
     Active Substance: DIPHENHYDRAMINE HYDROCHLORIDE
     Route: 042

REACTIONS (4)
  - Urinary tract infection [Recovered/Resolved]
  - Right ventricular failure [Unknown]
  - COVID-19 [Recovered/Resolved]
  - Brain fog [Not Recovered/Not Resolved]

NARRATIVE: CASE EVENT DATE: 20230626
